FAERS Safety Report 7994993-3 (Version None)
Quarter: 2011Q4

REPORT INFORMATION
  Report Type: 
  Country: None (occurrence: None)
  Receive Date: 20111220
  Receipt Date: 20111210
  Transmission Date: 20120403
  Serious: Yes (Life-Threatening, Hospitalization, Other)
  Sender: FDA-Public Use
  Company Number: US-JNJFOC-20100902062

PATIENT
  Sex: Male
  Weight: 108 kg

DRUGS (40)
  1. DOXORUBICIN HCL [Suspect]
     Route: 042
     Dates: end: 20100815
  2. RITUXAN [Suspect]
     Indication: BURKITT'S LYMPHOMA
     Route: 042
     Dates: start: 20100514
  3. CYCLOPHOSPHAMIDE [Suspect]
     Route: 065
  4. VINCRISTINE [Suspect]
     Route: 065
  5. METHOTREXATE [Suspect]
     Indication: BURKITT'S LYMPHOMA STAGE IV
     Route: 042
     Dates: end: 20100815
  6. IFOSFAMIDE [Suspect]
     Route: 065
     Dates: start: 20100514
  7. CYTARABINE [Suspect]
     Route: 065
     Dates: end: 20100815
  8. FILGRASTIM [Suspect]
     Route: 065
     Dates: start: 20100514
  9. METHOTREXATE [Suspect]
     Route: 042
  10. METHOTREXATE [Suspect]
     Route: 042
  11. ETOPOSIDE [Suspect]
     Route: 065
     Dates: end: 20100815
  12. ETOPOSIDE [Suspect]
     Route: 065
  13. CYTARABINE [Suspect]
     Indication: BURKITT'S LYMPHOMA STAGE IV
     Route: 065
  14. LEUCOVORIN CALCIUM [Suspect]
     Route: 065
     Dates: start: 20100514
  15. RITUXAN [Suspect]
     Route: 042
     Dates: end: 20100815
  16. VINCRISTINE [Suspect]
     Route: 065
  17. IFOSFAMIDE [Suspect]
     Route: 065
     Dates: end: 20100815
  18. IFOSFAMIDE [Suspect]
     Route: 065
  19. LEUCOVORIN CALCIUM [Suspect]
     Route: 065
  20. RITUXAN [Suspect]
     Route: 042
  21. CYCLOPHOSPHAMIDE [Suspect]
     Route: 065
     Dates: end: 20100815
  22. METHOTREXATE [Suspect]
     Route: 042
     Dates: start: 20100514
  23. IFOSFAMIDE [Suspect]
     Indication: BURKITT'S LYMPHOMA STAGE IV
     Route: 065
  24. FILGRASTIM [Suspect]
     Indication: BURKITT'S LYMPHOMA STAGE IV
     Route: 065
  25. FILGRASTIM [Suspect]
     Route: 065
     Dates: end: 20100815
  26. DOXORUBICIN HCL [Suspect]
     Route: 042
  27. CYCLOPHOSPHAMIDE [Suspect]
     Indication: BURKITT'S LYMPHOMA STAGE IV
     Route: 065
  28. VINCRISTINE [Suspect]
     Indication: BURKITT'S LYMPHOMA STAGE IV
     Route: 065
     Dates: end: 20100815
  29. CYTARABINE [Suspect]
     Route: 065
     Dates: start: 20100514
  30. DOXORUBICIN HCL [Suspect]
     Route: 042
  31. RITUXAN [Suspect]
     Route: 042
  32. CYTARABINE [Suspect]
     Route: 065
  33. LEUCOVORIN CALCIUM [Suspect]
     Indication: BURKITT'S LYMPHOMA STAGE IV
     Route: 065
     Dates: end: 20100815
  34. DOXORUBICIN HCL [Suspect]
     Indication: BURKITT'S LYMPHOMA STAGE IV
     Route: 042
     Dates: start: 20100514
  35. CYCLOPHOSPHAMIDE [Suspect]
     Route: 065
     Dates: start: 20100514
  36. VINCRISTINE [Suspect]
     Route: 065
     Dates: start: 20100514
  37. ETOPOSIDE [Suspect]
     Indication: BURKITT'S LYMPHOMA STAGE IV
     Route: 065
  38. ETOPOSIDE [Suspect]
     Route: 065
     Dates: start: 20100514
  39. LEUCOVORIN CALCIUM [Suspect]
     Route: 065
  40. FILGRASTIM [Suspect]
     Route: 065

REACTIONS (7)
  - HYPOCALCAEMIA [None]
  - SEPSIS [None]
  - BLOOD SODIUM ABNORMAL [None]
  - LYMPHOPENIA [None]
  - PANCYTOPENIA [None]
  - BLOOD GLUCOSE ABNORMAL [None]
  - NEUTROPENIC INFECTION [None]
